FAERS Safety Report 6480013-9 (Version None)
Quarter: 2009Q4

REPORT INFORMATION
  Report Type: 
  Country: None (occurrence: None)
  Receive Date: 20091208
  Receipt Date: 20091117
  Transmission Date: 20100525
  Serious: Yes (Other)
  Sender: FDA-Public Use
  Company Number: JP-SANOFI-AVENTIS-F01200901031

PATIENT
  Age: 62 Year
  Sex: Male
  Weight: 78 kg

DRUGS (10)
  1. CLOPIDOGREL BISULFATE [Suspect]
     Indication: ACUTE CORONARY SYNDROME
     Dosage: DOSE TEXT: MAINTENANCE DOSE
     Route: 048
     Dates: start: 20080917
  2. CLOPIDOGREL BISULFATE [Suspect]
     Indication: ANGINA UNSTABLE
     Dosage: DOSE TEXT: MAINTENANCE DOSE
     Route: 048
     Dates: start: 20080917
  3. ASPIRIN [Concomitant]
     Indication: ANGINA UNSTABLE
     Route: 048
     Dates: start: 20080917
  4. HEPARIN [Concomitant]
     Indication: ANGINA UNSTABLE
     Route: 042
     Dates: start: 20080924, end: 20080924
  5. LONGES [Concomitant]
     Route: 048
  6. ARTIST [Concomitant]
     Route: 048
  7. ADALAT CC [Concomitant]
     Route: 048
  8. NU LOTAN [Concomitant]
     Route: 048
  9. GLIMICRON [Concomitant]
     Route: 048
     Dates: end: 20090424
  10. ITAVASTATIN [Concomitant]
     Route: 048
     Dates: start: 20080917

REACTIONS (1)
  - DIABETES MELLITUS [None]
